FAERS Safety Report 5588174-0 (Version None)
Quarter: 2008Q1

REPORT INFORMATION
  Report Type: 
  Country: None (occurrence: None)
  Receive Date: 20080110
  Receipt Date: 20071231
  Transmission Date: 20080703
  Serious: Yes (Hospitalization)
  Sender: FDA-Public Use
  Company Number: US-KINGPHARMUSA00001-K200701656

PATIENT

DRUGS (6)
  1. ALTACE [Suspect]
     Dosage: 1 DF
     Route: 048
     Dates: end: 20070601
  2. LASILACTON [Suspect]
     Dosage: 1 DF, QD
     Route: 048
     Dates: end: 20070601
  3. TORSEMIDE [Suspect]
     Route: 048
     Dates: end: 20070601
  4. KARDEGIC  /00002703/ [Concomitant]
     Dosage: 1 DF, QD
     Route: 048
  5. SINGULAIR [Concomitant]
     Dosage: 1DF, QD
     Route: 048
  6. PANTOZOL   /01263202/ [Concomitant]
     Dosage: 20 MG, QD
     Route: 048

REACTIONS (4)
  - ABSCESS [None]
  - DRUG INTERACTION [None]
  - HYPERKALAEMIA [None]
  - RENAL FAILURE [None]
